FAERS Safety Report 5064347-0 (Version None)
Quarter: 2006Q3

REPORT INFORMATION
  Report Type: 
  Country: None (occurrence: None)
  Receive Date: 20060728
  Receipt Date: 20060621
  Transmission Date: 20061208
  Serious: Yes (Hospitalization, Other)
  Sender: FDA-Public Use
  Company Number: 2006UW13350

PATIENT
  Age: 7 Month
  Sex: Female

DRUGS (7)
  1. LOSEC [Suspect]
     Indication: GASTROINTESTINAL DISORDER
     Route: 050
     Dates: start: 20060621, end: 20060622
  2. LOSEC [Suspect]
     Route: 050
     Dates: start: 20060620, end: 20060620
  3. LOSEC [Suspect]
     Route: 050
     Dates: start: 20060613
  4. TPN [Concomitant]
  5. MUCOMYST [Concomitant]
  6. GENTAMICIN [Concomitant]
     Indication: GASTROINTESTINAL DISORDER
  7. FLAGYL [Concomitant]
     Indication: GASTROINTESTINAL DISORDER

REACTIONS (3)
  - DRUG INEFFECTIVE [None]
  - HAEMOGLOBIN DECREASED [None]
  - HAEMORRHAGE [None]
